FAERS Safety Report 5504445-8 (Version None)
Quarter: 2007Q4

REPORT INFORMATION
  Report Type: 
  Country: None (occurrence: None)
  Receive Date: 20071101
  Receipt Date: 20071022
  Transmission Date: 20080405
  Serious: Yes (Other)
  Sender: FDA-Public Use
  Company Number: US-PFIZER INC-2007089276

PATIENT
  Sex: Female

DRUGS (5)
  1. LIPITOR [Suspect]
     Indication: BLOOD CHOLESTEROL INCREASED
  2. ATENOLOL [Concomitant]
  3. VALSARTAN [Concomitant]
  4. GLYBURIDE [Concomitant]
  5. METFORMIN HCL [Concomitant]

REACTIONS (5)
  - ASTHENIA [None]
  - BLOOD TEST ABNORMAL [None]
  - MYOPATHY TOXIC [None]
  - MYOSITIS [None]
  - WEIGHT DECREASED [None]
